FAERS Safety Report 10385755 (Version 2)
Quarter: 2014Q3

REPORT INFORMATION
  Report Type: Spontaneous
  Country: US (occurrence: US)
  Receive Date: 20140814
  Receipt Date: 20140814
  Transmission Date: 20150326
  Serious: Yes (Hospitalization, Other)
  Sender: FDA-Public Use
  Company Number: US-009507513-2009-196218-NL

PATIENT
  Sex: Female
  Weight: 61.24 kg

DRUGS (1)
  1. NUVARING [Suspect]
     Active Substance: ETHINYL ESTRADIOL\ETONOGESTREL
     Indication: CONTRACEPTION
     Dosage: CONTINUING: NO
     Route: 067
     Dates: start: 200704, end: 20070508

REACTIONS (8)
  - Urinary tract infection [Unknown]
  - Metrorrhagia [Unknown]
  - Nipple pain [Unknown]
  - Varicose vein [Unknown]
  - Pulmonary embolism [Recovered/Resolved]
  - Anxiety [Unknown]
  - Pulmonary mass [Unknown]
  - Depression [Unknown]

NARRATIVE: CASE EVENT DATE: 200704
